FAERS Safety Report 15362471 (Version 1)
Quarter: 2018Q3

REPORT INFORMATION
  Report Type: Report from Study
  Country: None (occurrence: JP)
  Receive Date: 20180907
  Receipt Date: 20180907
  Transmission Date: 20181010
  Serious: Yes (Death)
  Sender: FDA-Public Use
  Company Number: JP-US WORLDMEDS, LLC-USW201809-001340

PATIENT
  Age: 80 Year
  Sex: Male

DRUGS (1)
  1. APOKYN [Suspect]
     Active Substance: APOMORPHINE HYDROCHLORIDE
     Indication: PRODUCT USED FOR UNKNOWN INDICATION
     Route: 058
     Dates: start: 20150527

REACTIONS (3)
  - Agitation [Recovered/Resolved]
  - Nausea [Recovered/Resolved]
  - Death [Fatal]
